FAERS Safety Report 22152038 (Version 1)
Quarter: 2023Q1

REPORT INFORMATION
  Report Type: Spontaneous
  Country: NL (occurrence: NL)
  Receive Date: 20230329
  Receipt Date: 20230329
  Transmission Date: 20230418
  Serious: No
  Sender: FDA-Public Use
  Company Number: NL-PFIZER INC-202300078909

PATIENT
  Sex: Female

DRUGS (1)
  1. FRAGMIN [Suspect]
     Active Substance: DALTEPARIN SODIUM
     Dosage: DURING 1,5 YEARS

REACTIONS (2)
  - Needle issue [Unknown]
  - Wrong technique in device usage process [Unknown]
